FAERS Safety Report 18299143 (Version 2)
Quarter: 2020Q4

REPORT INFORMATION
  Report Type: Report from Study
  Country: US (occurrence: US)
  Receive Date: 20200923
  Receipt Date: 20201009
  Transmission Date: 20210113
  Serious: Yes (Hospitalization)
  Sender: FDA-Public Use
  Company Number: US-ROCHE-2676994

PATIENT
  Age: 64 Year
  Sex: Female

DRUGS (27)
  1. ATEZOLIZUMAB. [Suspect]
     Active Substance: ATEZOLIZUMAB
     Dosage: UNTIL DISEASE PROGRESSION
     Route: 042
     Dates: start: 20190927
  2. ATEZOLIZUMAB. [Suspect]
     Active Substance: ATEZOLIZUMAB
     Dosage: UNTIL DISEASE PROGRESSION
     Route: 042
     Dates: start: 20200406
  3. PREMARIN [Concomitant]
     Active Substance: ESTROGENS, CONJUGATED
     Indication: VAGINAL HAEMORRHAGE
     Route: 067
     Dates: start: 20190815
  4. NYSTATIN. [Concomitant]
     Active Substance: NYSTATIN
     Indication: MUCOSAL INFECTION
     Dosage: 1 SWISH AS NEEDED
     Route: 048
     Dates: start: 20200512
  5. ATEZOLIZUMAB. [Suspect]
     Active Substance: ATEZOLIZUMAB
     Indication: TRANSITIONAL CELL CARCINOMA RECURRENT
     Dosage: UNTIL DISEASE PROGRESSION
     Route: 042
     Dates: start: 20190613
  6. ATEZOLIZUMAB. [Suspect]
     Active Substance: ATEZOLIZUMAB
     Dosage: UNTIL DISEASE PROGRESSION
     Route: 042
     Dates: start: 20190722
  7. ATEZOLIZUMAB. [Suspect]
     Active Substance: ATEZOLIZUMAB
     Dosage: UNTIL DISEASE PROGRESSION
     Route: 042
     Dates: start: 20191202
  8. ATEZOLIZUMAB. [Suspect]
     Active Substance: ATEZOLIZUMAB
     Dosage: UNTIL DISEASE PROGRESSION
     Route: 042
     Dates: start: 20200224
  9. ATEZOLIZUMAB. [Suspect]
     Active Substance: ATEZOLIZUMAB
     Dosage: UNTIL DISEASE PROGRESSION
     Route: 042
     Dates: start: 20200518
  10. TYLENOL [Concomitant]
     Active Substance: ACETAMINOPHEN
     Indication: PAIN
     Route: 048
  11. ASCORBIC ACID. [Concomitant]
     Active Substance: ASCORBIC ACID
     Route: 048
     Dates: start: 20180412
  12. SENOKOT [Concomitant]
     Active Substance: SENNOSIDES
     Indication: CONSTIPATION
     Route: 048
     Dates: start: 20181128
  13. ATEZOLIZUMAB. [Suspect]
     Active Substance: ATEZOLIZUMAB
     Dosage: UNTIL DISEASE PROGRESSION
     Route: 042
     Dates: start: 20190905
  14. ATEZOLIZUMAB. [Suspect]
     Active Substance: ATEZOLIZUMAB
     Dosage: UNTIL DISEASE PROGRESSION
     Route: 042
     Dates: start: 20200427
  15. ATEZOLIZUMAB. [Suspect]
     Active Substance: ATEZOLIZUMAB
     Dosage: UNTIL DISEASE PROGRESSION
     Route: 042
     Dates: start: 20200608
  16. CALCIUM [Concomitant]
     Active Substance: CALCIUM
     Route: 048
     Dates: start: 20180429
  17. ATEZOLIZUMAB. [Suspect]
     Active Substance: ATEZOLIZUMAB
     Dosage: UNTIL DISEASE PROGRESSION
     Route: 042
     Dates: start: 20191021
  18. ATEZOLIZUMAB. [Suspect]
     Active Substance: ATEZOLIZUMAB
     Dosage: UNTIL DISEASE PROGRESSION
     Route: 042
     Dates: start: 20191219
  19. ATEZOLIZUMAB. [Suspect]
     Active Substance: ATEZOLIZUMAB
     Dosage: UNTIL DISEASE PROGRESSION
     Route: 042
     Dates: start: 20200810
  20. ATEZOLIZUMAB. [Suspect]
     Active Substance: ATEZOLIZUMAB
     Dosage: UNTIL DISEASE PROGRESSION
     Route: 042
     Dates: start: 20191114
  21. ATEZOLIZUMAB. [Suspect]
     Active Substance: ATEZOLIZUMAB
     Dosage: UNTIL DISEASE PROGRESSION
     Route: 042
     Dates: start: 20200203
  22. ATEZOLIZUMAB. [Suspect]
     Active Substance: ATEZOLIZUMAB
     Dosage: UNTIL DISEASE PROGRESSION
     Route: 042
     Dates: start: 20200316
  23. ATEZOLIZUMAB. [Suspect]
     Active Substance: ATEZOLIZUMAB
     Dosage: UNTIL DISEASE PROGRESSION
     Route: 042
     Dates: start: 20190815
  24. ATEZOLIZUMAB. [Suspect]
     Active Substance: ATEZOLIZUMAB
     Dosage: UNTIL DISEASE PROGRESSION
     Route: 042
     Dates: start: 20200113
  25. PROTONIX [Concomitant]
     Active Substance: PANTOPRAZOLE SODIUM
     Indication: GASTROOESOPHAGEAL REFLUX DISEASE
     Route: 048
  26. FLONASE [Concomitant]
     Active Substance: FLUTICASONE PROPIONATE
     Indication: RHINITIS ALLERGIC
     Route: 045
     Dates: start: 20180412
  27. ATEZOLIZUMAB. [Suspect]
     Active Substance: ATEZOLIZUMAB
     Dosage: UNTIL DISEASE PROGRESSION
     Route: 042
     Dates: start: 20190702

REACTIONS (1)
  - Liver function test increased [Recovered/Resolved]

NARRATIVE: CASE EVENT DATE: 20200828
